FAERS Safety Report 7407651-0 (Version None)
Quarter: 2011Q2

REPORT INFORMATION
  Report Type: 
  Country: None (occurrence: None)
  Receive Date: 20110404
  Receipt Date: 20110329
  Transmission Date: 20111010
  Serious: Yes (Death, Hospitalization)
  Sender: FDA-Public Use
  Company Number: 2011SP001732

PATIENT
  Age: 40 Year
  Sex: Male
  Weight: 60 kg

DRUGS (7)
  1. NORADRENALIN [Concomitant]
  2. NICORANDIL [Concomitant]
  3. ESLAX (ROCURONIUM BROMIDE /01245702/) [Suspect]
     Indication: NEUROMUSCULAR BLOCKING THERAPY
     Dosage: 25 MG; QH; INDRP
     Route: 041
     Dates: start: 20110108
  4. BRIDION (SUGAMMADEX /00000000/) [Suspect]
     Indication: NEUROMUSCULAR BLOCKADE REVERSAL
     Dosage: 200 MG; ; IV
     Route: 042
     Dates: start: 20110112, end: 20110112
  5. BRIDION (SUGAMMADEX /00000000/) [Suspect]
     Indication: NEUROMUSCULAR BLOCKADE REVERSAL
     Dosage: 200 MG; ; IV
     Route: 042
     Dates: start: 20110111, end: 20110111
  6. DOPAMINE [Concomitant]
  7. DORMICUM [Concomitant]

REACTIONS (6)
  - PULMONARY OEDEMA [None]
  - RECURRENCE OF NEUROMUSCULAR BLOCKADE [None]
  - CIRCULATORY COLLAPSE [None]
  - PO2 DECREASED [None]
  - CONDITION AGGRAVATED [None]
  - RENAL FAILURE ACUTE [None]
